FAERS Safety Report 16463599 (Version 1)
Quarter: 2019Q2

REPORT INFORMATION
  Report Type: Spontaneous
  Country: US (occurrence: US)
  Receive Date: 20190621
  Receipt Date: 20190621
  Transmission Date: 20190711
  Serious: No
  Sender: FDA-Public Use
  Company Number: US-ADAMAS PHARMA, LLC-2019ADA00494

PATIENT

DRUGS (1)
  1. GOCOVRI [Suspect]
     Active Substance: AMANTADINE
     Dosage: 274 MG

REACTIONS (1)
  - Dyskinesia [Not Recovered/Not Resolved]
